FAERS Safety Report 6130763-9 (Version None)
Quarter: 2009Q1

REPORT INFORMATION
  Report Type: 
  Country: None (occurrence: None)
  Receive Date: 20090323
  Receipt Date: 20090312
  Transmission Date: 20090719
  Serious: Yes (Other)
  Sender: FDA-Public Use
  Company Number: CHPA2009US06706

PATIENT
  Sex: Female

DRUGS (1)
  1. VOLTAREN [Suspect]
     Indication: PLANTAR FASCIITIS
     Dosage: TOPICAL
     Route: 061

REACTIONS (3)
  - DENTAL OPERATION [None]
  - NERVE INJURY [None]
  - PHANTOM PAIN [None]
